FAERS Safety Report 24782500 (Version 1)
Quarter: 2024Q4

REPORT INFORMATION
  Report Type: Report from Study
  Country: US (occurrence: US)
  Receive Date: 20241227
  Receipt Date: 20241227
  Transmission Date: 20250115
  Serious: Yes (Other)
  Sender: SERVIER
  Company Number: US-SERVIER-S24014945

PATIENT

DRUGS (1)
  1. VORASIDENIB [Suspect]
     Active Substance: VORASIDENIB
     Indication: Brain neoplasm malignant
     Dosage: 40 MG, QD
     Route: 048
     Dates: start: 20241101

REACTIONS (2)
  - Dizziness [Unknown]
  - Fall [Recovered/Resolved]

NARRATIVE: CASE EVENT DATE: 20240101
